FAERS Safety Report 22330666 (Version 3)
Quarter: 2023Q2

REPORT INFORMATION
  Report Type: Report from Study
  Country: US (occurrence: US)
  Receive Date: 20230517
  Receipt Date: 20230606
  Transmission Date: 20230721
  Serious: Yes (Other)
  Sender: FDA-Public Use
  Company Number: US-GILEAD-2023-0628106

PATIENT
  Sex: Female

DRUGS (2)
  1. SACITUZUMAB GOVITECAN-HZIY [Suspect]
     Active Substance: SACITUZUMAB GOVITECAN-HZIY
     Indication: Triple negative breast cancer
     Dosage: ^50%^ DOSE, 2 WEEKS ON AND 1 WEEK OFF
     Route: 065
     Dates: start: 202202
  2. KEYTRUDA [Concomitant]
     Active Substance: PEMBROLIZUMAB

REACTIONS (4)
  - Liver disorder [Unknown]
  - Constipation [Recovering/Resolving]
  - Diarrhoea [Recovering/Resolving]
  - Therapy change [Unknown]
